FAERS Safety Report 13924546 (Version 1)
Quarter: 2017Q3

REPORT INFORMATION
  Report Type: Spontaneous
  Country: US (occurrence: US)
  Receive Date: 20170831
  Receipt Date: 20170831
  Transmission Date: 20171127
  Serious: Yes (Hospitalization, Other)
  Sender: FDA-Public Use
  Company Number: US-ASTRAZENECA-2017SE86897

PATIENT
  Age: 45 Year
  Sex: Male
  Weight: 72.6 kg

DRUGS (3)
  1. SEROQUEL [Suspect]
     Active Substance: QUETIAPINE FUMARATE
     Indication: INSOMNIA
     Dosage: 50 MG TWICE DAILY AND 300 MG AT NIGHT
     Route: 048
     Dates: start: 2015
  2. SEROQUEL [Suspect]
     Active Substance: QUETIAPINE FUMARATE
     Indication: BIPOLAR DISORDER
     Dosage: 50 MG TWICE DAILY AND 300 MG AT NIGHT
     Route: 048
     Dates: start: 2015
  3. WARFARIN [Concomitant]
     Active Substance: WARFARIN
     Indication: HAEMORRHAGE PROPHYLAXIS
     Route: 048
     Dates: start: 201706

REACTIONS (4)
  - Chronic obstructive pulmonary disease [Not Recovered/Not Resolved]
  - Blindness unilateral [Not Recovered/Not Resolved]
  - Dyspnoea [Not Recovered/Not Resolved]
  - Pulmonary thrombosis [Recovered/Resolved]

NARRATIVE: CASE EVENT DATE: 2015
